FAERS Safety Report 9858467 (Version 3)
Quarter: 2014Q2

REPORT INFORMATION
  Report Type: Spontaneous
  Country: SE (occurrence: SE)
  Receive Date: 20140131
  Receipt Date: 20140612
  Transmission Date: 20141212
  Serious: Yes (Hospitalization, Other)
  Sender: FDA-Public Use
  Company Number: SE-SA-2014SA010061

PATIENT
  Age: 48 Year
  Sex: Female

DRUGS (11)
  1. MULTAQ [Suspect]
     Indication: ATRIAL FIBRILLATION
     Route: 065
     Dates: start: 20131216, end: 20131230
  2. BEHEPAN [Concomitant]
  3. EMGESAN [Concomitant]
  4. FOLACIN [Concomitant]
  5. MIRTAZAPINE [Concomitant]
  6. TROMBYL [Concomitant]
  7. POLYVIDONE [Concomitant]
  8. OMEPRAZOLE [Concomitant]
  9. OXASCAND [Concomitant]
  10. PANODIL [Concomitant]
  11. ZOLPIDEM [Concomitant]

REACTIONS (2)
  - Renal impairment [Unknown]
  - Atrial fibrillation [Recovered/Resolved]
